FAERS Safety Report 9306242 (Version 1)
Quarter: 2013Q2

REPORT INFORMATION
  Report Type: Report from Study
  Country: JP (occurrence: JP)
  Receive Date: 20130523
  Receipt Date: 20130523
  Transmission Date: 20140414
  Serious: Yes (Other)
  Sender: FDA-Public Use
  Company Number: JP-SANOFI-AVENTIS-2013SA049989

PATIENT
  Age: 65 Year
  Sex: Male
  Weight: 71.3 kg

DRUGS (5)
  1. LANTUS SOLOSTAR [Suspect]
     Indication: TYPE 2 DIABETES MELLITUS
     Dosage: DOSE:10 UNIT(S)
     Route: 058
     Dates: start: 20121017
  2. SOLOSTAR [Suspect]
     Indication: DEVICE THERAPY
     Dates: start: 20121017
  3. JANUVIA [Concomitant]
     Indication: TYPE 2 DIABETES MELLITUS
     Route: 048
     Dates: start: 20121017
  4. LIPITOR [Concomitant]
     Route: 048
  5. ALESION [Concomitant]
     Route: 048
     Dates: start: 20121017, end: 20130503

REACTIONS (1)
  - Enteritis infectious [Recovered/Resolved]
